FAERS Safety Report 4902247-4 (Version None)
Quarter: 2006Q1

REPORT INFORMATION
  Report Type: 
  Country: None (occurrence: None)
  Receive Date: 20060207
  Receipt Date: 20050628
  Transmission Date: 20060701
  Serious: Yes (Hospitalization)
  Sender: FDA-Public Use
  Company Number: US-MERCK-0506USA03985

PATIENT
  Age: 80 Year
  Sex: Male

DRUGS (10)
  1. VIOXX [Suspect]
     Indication: ARTHRALGIA
     Route: 048
  2. TOPROL-XL [Concomitant]
     Route: 048
  3. PLAVIX [Concomitant]
     Route: 048
  4. NORVASC [Concomitant]
     Route: 048
  5. ASPIRIN [Concomitant]
     Route: 048
  6. ZOCOR [Concomitant]
     Route: 048
  7. IMDUR [Concomitant]
     Route: 048
  8. LISINOPRIL [Concomitant]
     Route: 048
  9. NEXIUM [Concomitant]
     Route: 048
  10. FLOMAX [Concomitant]
     Route: 048

REACTIONS (19)
  - AMAUROSIS FUGAX [None]
  - ARTERIOSCLEROSIS CORONARY ARTERY [None]
  - ARTHROPATHY [None]
  - ATRIOVENTRICULAR BLOCK FIRST DEGREE [None]
  - BRAIN DAMAGE [None]
  - CARDIAC DISORDER [None]
  - CARDIOVASCULAR DISORDER [None]
  - CEREBRAL ATROPHY [None]
  - CORONARY ARTERY DISEASE [None]
  - INJURY [None]
  - KNEE ARTHROPLASTY [None]
  - MITRAL VALVE INCOMPETENCE [None]
  - MULTI-ORGAN DISORDER [None]
  - MYOCARDIAL ISCHAEMIA [None]
  - PAIN [None]
  - SINUS BRADYCARDIA [None]
  - TRANSIENT ISCHAEMIC ATTACK [None]
  - VASCULAR GRAFT OCCLUSION [None]
  - VENTRICULAR HYPERTROPHY [None]
